FAERS Safety Report 23762057 (Version 1)
Quarter: 2024Q2

REPORT INFORMATION
  Report Type: Spontaneous
  Country: GB (occurrence: GB)
  Receive Date: 20240419
  Receipt Date: 20240419
  Transmission Date: 20240716
  Serious: Yes (Other)
  Sender: FDA-Public Use
  Company Number: GB-ABBVIE-5724461

PATIENT
  Age: 23 Year
  Sex: Male
  Weight: 68 kg

DRUGS (1)
  1. NITROGLYCERIN [Suspect]
     Active Substance: NITROGLYCERIN
     Indication: Anal fissure
     Dosage: 375 MILLIGRAM, FORM STRENGTH: 0.4%
     Route: 054
     Dates: start: 20240403

REACTIONS (2)
  - Erectile dysfunction [Recovered/Resolved]
  - Headache [Recovered/Resolved]
